FAERS Safety Report 6638377-9 (Version None)
Quarter: 2010Q1

REPORT INFORMATION
  Report Type: 
  Country: None (occurrence: None)
  Receive Date: 20100317
  Receipt Date: 20100312
  Transmission Date: 20100710
  Serious: Yes (Other)
  Sender: FDA-Public Use
  Company Number: A0850003A

PATIENT
  Sex: Male

DRUGS (3)
  1. ADVAIR DISKUS 100/50 [Suspect]
     Dosage: 1PUFF TWICE PER DAY
     Route: 055
     Dates: start: 20020101
  2. SERETIDE ACCUHALER [Suspect]
     Dosage: 1PUFF TWICE PER DAY
     Route: 055
     Dates: start: 20100111, end: 20100308
  3. CRESTOR [Concomitant]

REACTIONS (7)
  - ADVERSE DRUG REACTION [None]
  - COUGH [None]
  - DYSPHONIA [None]
  - HAEMORRHAGE [None]
  - MEDICATION ERROR [None]
  - PRODUCTIVE COUGH [None]
  - RASH PUSTULAR [None]
